FAERS Safety Report 22656834 (Version 1)
Quarter: 2023Q2

REPORT INFORMATION
  Report Type: Report from Study
  Country: US (occurrence: US)
  Receive Date: 20230630
  Receipt Date: 20230630
  Transmission Date: 20230721
  Serious: Yes (Death, Hospitalization, Other)
  Sender: FDA-Public Use
  Company Number: US-ACADIA PHARMACEUTICALS INC.-ACA-2023-PIM-002268

PATIENT
  Sex: Male

DRUGS (3)
  1. NUPLAZID [Suspect]
     Active Substance: PIMAVANSERIN TARTRATE
     Indication: Parkinson^s disease psychosis
     Dosage: 34 MILLIGRAM, QD
     Route: 048
     Dates: start: 20220802
  2. SEROQUEL [Concomitant]
     Active Substance: QUETIAPINE FUMARATE
  3. RASAGILINE [Concomitant]
     Active Substance: RASAGILINE

REACTIONS (2)
  - Acute respiratory failure [Recovered/Resolved]
  - Hypoxia [Recovered/Resolved]
